FAERS Safety Report 8474036-8 (Version None)
Quarter: 2012Q2

REPORT INFORMATION
  Report Type: 
  Country: None (occurrence: None)
  Receive Date: 20120628
  Receipt Date: 20120413
  Transmission Date: 20120825
  Serious: Yes (Hospitalization, Other)
  Sender: FDA-Public Use
  Company Number: US-MYLANLABS-2012S1008067

PATIENT
  Age: 51 Year
  Sex: Female

DRUGS (8)
  1. INSULIN [Concomitant]
  2. LISINOPRIL [Concomitant]
     Route: 048
  3. PROVIGIL [Concomitant]
  4. LOZAL [Concomitant]
     Route: 048
  5. CLOZAPINE [Suspect]
     Indication: PSYCHOTIC DISORDER
     Route: 048
     Dates: start: 20040601, end: 20120404
  6. AMLODIPINE [Concomitant]
     Route: 048
  7. CHANTIX [Concomitant]
  8. XANAX [Concomitant]
     Route: 048

REACTIONS (2)
  - GRANULOCYTOPENIA [None]
  - INFECTION [None]
